FAERS Safety Report 7140953-4 (Version None)
Quarter: 2010Q4

REPORT INFORMATION
  Report Type: 
  Country: None (occurrence: None)
  Receive Date: 20101201
  Receipt Date: 20101201
  Transmission Date: 20110411
  Serious: Yes (Other)
  Sender: FDA-Public Use
  Company Number: None

PATIENT
  Age: 53 Year
  Sex: Male
  Weight: 83.9154 kg

DRUGS (3)
  1. OXYCONTIN [Suspect]
     Indication: PAIN
     Dosage: TOOK ONLY 2 PER DAY PO
     Route: 048
     Dates: start: 20101016, end: 20101127
  2. OXYCONTIN [Suspect]
     Indication: PROCEDURAL PAIN
     Dosage: TOOK ONLY 2 PER DAY PO
     Route: 048
     Dates: start: 20101016, end: 20101127
  3. OXYCONTIN [Suspect]
     Indication: SPINAL COLUMN STENOSIS
     Dosage: TOOK ONLY 2 PER DAY PO
     Route: 048
     Dates: start: 20101016, end: 20101127

REACTIONS (10)
  - ABDOMINAL DISCOMFORT [None]
  - ABDOMINAL PAIN [None]
  - ANXIETY [None]
  - DEFAECATION URGENCY [None]
  - DIARRHOEA [None]
  - DISCOMFORT [None]
  - DRUG INEFFECTIVE [None]
  - PAIN [None]
  - PRODUCT FORMULATION ISSUE [None]
  - PRODUCT SOLUBILITY ABNORMAL [None]
